FAERS Safety Report 4564624-3 (Version None)
Quarter: 2005Q1

REPORT INFORMATION
  Report Type: 
  Country: None (occurrence: None)
  Receive Date: 20050126
  Receipt Date: 20040601
  Transmission Date: 20050727
  Serious: Yes (Hospitalization, Other)
  Sender: FDA-Public Use
  Company Number: SGB1-2004-00485

PATIENT
  Age: 75 Year

DRUGS (4)
  1. AGRYLIN [Suspect]
     Indication: POLYCYTHAEMIA VERA
     Dosage: SEE IMAGE, ORAL
     Route: 048
     Dates: start: 19990801, end: 19990801
  2. AGRYLIN [Suspect]
     Indication: POLYCYTHAEMIA VERA
     Dosage: SEE IMAGE, ORAL
     Route: 048
     Dates: start: 19990804, end: 19990801
  3. AGRYLIN [Suspect]
     Indication: POLYCYTHAEMIA VERA
     Dosage: SEE IMAGE, ORAL
     Route: 048
     Dates: start: 19990818
  4. HYDROXYUREA [Concomitant]

REACTIONS (8)
  - FOOD INTOLERANCE [None]
  - GASTROINTESTINAL INFECTION [None]
  - GENERAL PHYSICAL HEALTH DETERIORATION [None]
  - HAEMODIALYSIS [None]
  - NAUSEA [None]
  - PYREXIA [None]
  - TUBULOINTERSTITIAL NEPHRITIS [None]
  - VOMITING [None]
